FAERS Safety Report 21412155 (Version 3)
Quarter: 2023Q1

REPORT INFORMATION
  Report Type: Spontaneous
  Country: CA (occurrence: CA)
  Receive Date: 20221005
  Receipt Date: 20230106
  Transmission Date: 20230418
  Serious: Yes (Hospitalization, Other)
  Sender: FDA-Public Use
  Company Number: CA-PFIZER INC-202201201450

PATIENT
  Age: 35 Year
  Sex: Male
  Weight: 59 kg

DRUGS (3)
  1. ABRILADA [Suspect]
     Active Substance: ADALIMUMAB-AFZB
     Indication: Ankylosing spondylitis
     Dosage: 40 MG, EVERY 2 WEEKS
     Route: 058
     Dates: start: 20220701, end: 2022
  2. CELECOXIB [Concomitant]
     Active Substance: CELECOXIB
     Dosage: 1 DF
     Route: 065
  3. METHOTREXATE [Concomitant]
     Active Substance: METHOTREXATE
     Dosage: 1 DF
     Route: 065

REACTIONS (4)
  - Pyrexia [Unknown]
  - Suicidal ideation [Unknown]
  - Therapeutic product effect incomplete [Unknown]
  - Pain [Not Recovered/Not Resolved]

NARRATIVE: CASE EVENT DATE: 20220101
